FAERS Safety Report 4276603-4 (Version None)
Quarter: 2004Q1

REPORT INFORMATION
  Report Type: 
  Country: None (occurrence: None)
  Receive Date: 20040120
  Receipt Date: 20040115
  Transmission Date: 20041129
  Serious: Yes (Death, Life-Threatening, Hospitalization)
  Sender: FDA-Public Use
  Company Number: PERC20030092

PATIENT
  Age: 30 Year
  Sex: Male

DRUGS (3)
  1. PERCOCET [Suspect]
     Indication: BACK PAIN
     Dosage: Q2H PO
     Route: 048
  2. NAPROXEN [Suspect]
     Indication: BACK PAIN
     Dosage: 1000 MG PO
     Route: 048
  3. NABUMETONE [Suspect]
     Indication: CELLULITIS
     Dosage: 1000 MG Q4H PO
     Route: 048

REACTIONS (11)
  - ABDOMINAL PAIN UPPER [None]
  - ALANINE AMINOTRANSFERASE INCREASED [None]
  - ASPARTATE AMINOTRANSFERASE INCREASED [None]
  - BLOOD CREATININE INCREASED [None]
  - BLOOD UREA INCREASED [None]
  - HAEMODIALYSIS [None]
  - MULTI-ORGAN FAILURE [None]
  - NAUSEA [None]
  - RENAL IMPAIRMENT [None]
  - SEPTIC SHOCK [None]
  - STAPHYLOCOCCAL SEPSIS [None]
